FAERS Safety Report 16719859 (Version 6)
Quarter: 2020Q3

REPORT INFORMATION
  Report Type: Spontaneous
  Country: US (occurrence: US)
  Receive Date: 20190820
  Receipt Date: 20200831
  Transmission Date: 20201102
  Serious: No
  Sender: FDA-Public Use
  Company Number: US-PFIZER INC-2019353637

PATIENT
  Age: 74 Year
  Sex: Female

DRUGS (5)
  1. LIPITOR [Concomitant]
     Active Substance: ATORVASTATIN CALCIUM
     Indication: BLOOD CHOLESTEROL ABNORMAL
     Dosage: 10 MG
  2. AMLODIPINE [Concomitant]
     Active Substance: AMLODIPINE BESYLATE
     Indication: HYPERTENSION
     Dosage: 7.5 MG
  3. FLECTOR [Suspect]
     Active Substance: DICLOFENAC EPOLAMINE
     Indication: PAIN
     Dosage: 1 PATCH AS NEEDED
     Route: 062
  4. FLECTOR [Suspect]
     Active Substance: DICLOFENAC EPOLAMINE
     Indication: BACK PAIN
  5. FLECTOR [Suspect]
     Active Substance: DICLOFENAC EPOLAMINE
     Indication: INFLAMMATION
     Dosage: ONE PATCH TO CLEAN DRY AREA OF SKIN TWICE DAILY
     Route: 062
     Dates: start: 20200825

REACTIONS (7)
  - Product use in unapproved indication [Unknown]
  - Arthralgia [Recovering/Resolving]
  - Feeling abnormal [Unknown]
  - Weight increased [Unknown]
  - Off label use [Unknown]
  - Gait disturbance [Unknown]
  - Body height decreased [Unknown]
